FAERS Safety Report 14354738 (Version 2)
Quarter: 2018Q1

REPORT INFORMATION
  Report Type: Spontaneous
  Country: CO (occurrence: CO)
  Receive Date: 20180105
  Receipt Date: 20180122
  Transmission Date: 20180509
  Serious: Yes (Hospitalization, Other)
  Sender: FDA-Public Use
  Company Number: CO-ROCHE-2048753

PATIENT
  Age: 48 Year
  Sex: Female

DRUGS (16)
  1. ERLOTINIB [Suspect]
     Active Substance: ERLOTINIB
     Indication: LUNG NEOPLASM MALIGNANT
     Route: 065
     Dates: start: 20131207
  2. ERLOTINIB [Suspect]
     Active Substance: ERLOTINIB
     Route: 065
     Dates: start: 20160225, end: 201604
  3. CARBOPLATIN. [Suspect]
     Active Substance: CARBOPLATIN
     Route: 065
     Dates: start: 20161118, end: 20170127
  4. AVASTIN [Suspect]
     Active Substance: BEVACIZUMAB
     Route: 065
     Dates: start: 20161118, end: 20170127
  5. PACLITAXEL. [Suspect]
     Active Substance: PACLITAXEL
     Indication: LUNG NEOPLASM MALIGNANT
     Route: 065
     Dates: end: 20131025
  6. PEMETREXED. [Suspect]
     Active Substance: PEMETREXED
     Indication: LUNG NEOPLASM MALIGNANT
     Route: 065
  7. AVASTIN [Suspect]
     Active Substance: BEVACIZUMAB
     Route: 065
     Dates: start: 20131115, end: 20131115
  8. CRIZOTINIB [Suspect]
     Active Substance: CRIZOTINIB
     Dosage: 200 MG EVERY 12 HOURS
     Route: 065
     Dates: start: 20151111, end: 20160121
  9. PEMETREXED. [Suspect]
     Active Substance: PEMETREXED
     Route: 065
     Dates: start: 20161118, end: 20170127
  10. PEMETREXED. [Suspect]
     Active Substance: PEMETREXED
     Route: 065
     Dates: start: 20151111, end: 20160121
  11. NIVOLUMAB [Suspect]
     Active Substance: NIVOLUMAB
     Indication: LUNG NEOPLASM MALIGNANT
     Route: 065
     Dates: start: 20170214, end: 20170728
  12. CARBOPLATIN. [Suspect]
     Active Substance: CARBOPLATIN
     Indication: LUNG NEOPLASM MALIGNANT
     Route: 065
     Dates: end: 20131025
  13. AVASTIN [Suspect]
     Active Substance: BEVACIZUMAB
     Indication: LUNG NEOPLASM MALIGNANT
     Route: 065
     Dates: end: 20131025
  14. CRIZOTINIB [Suspect]
     Active Substance: CRIZOTINIB
     Indication: LUNG NEOPLASM MALIGNANT
     Dosage: 250 MG EVERY 12 HOURS
     Route: 065
     Dates: start: 20140113
  15. CRIZOTINIB [Suspect]
     Active Substance: CRIZOTINIB
     Route: 065
     Dates: start: 20160225, end: 201604
  16. CERITINIB [Suspect]
     Active Substance: CERITINIB
     Indication: LUNG NEOPLASM MALIGNANT
     Route: 065
     Dates: start: 20160504

REACTIONS (27)
  - Neuropathy peripheral [Unknown]
  - Umbilical hernia [Unknown]
  - Adenomyosis [Unknown]
  - Leukocyturia [Unknown]
  - Pain [Unknown]
  - Discomfort [Unknown]
  - Arthralgia [Unknown]
  - Lymphadenopathy [Unknown]
  - Haematuria [Unknown]
  - Insomnia [Unknown]
  - Dyspnoea [Unknown]
  - Embolism [Unknown]
  - Toxicity to various agents [Unknown]
  - Pneumonitis [Unknown]
  - Sleep disorder [Unknown]
  - Ovarian cyst [Unknown]
  - Diarrhoea [Unknown]
  - Pneumonitis [Recovered/Resolved]
  - Disease progression [Unknown]
  - Endometrial atrophy [Unknown]
  - Nausea [Unknown]
  - Asthenia [Unknown]
  - Osteopenia [Unknown]
  - Cough [Unknown]
  - Drug ineffective [Unknown]
  - Hepatic steatosis [Unknown]
  - Myalgia [Unknown]

NARRATIVE: CASE EVENT DATE: 2014
